FAERS Safety Report 18233563 (Version 1)
Quarter: 2020Q3

REPORT INFORMATION
  Report Type: Spontaneous
  Country: CA (occurrence: CA)
  Receive Date: 20200904
  Receipt Date: 20200904
  Transmission Date: 20201103
  Serious: Yes (Hospitalization)
  Sender: FDA-Public Use
  Company Number: CA-TEVA-2020-CA-1822923

PATIENT
  Age: 65 Year
  Sex: Male

DRUGS (2)
  1. HYDROCHLOROTHIAZIDE. [Suspect]
     Active Substance: HYDROCHLOROTHIAZIDE
     Route: 048
  2. CANDESARTAN. [Concomitant]
     Active Substance: CANDESARTAN

REACTIONS (5)
  - Blood creatinine abnormal [Unknown]
  - Hypotension [Unknown]
  - Blood pressure systolic decreased [Unknown]
  - Fall [Unknown]
  - Electrolyte imbalance [Unknown]
